FAERS Safety Report 18178963 (Version 1)
Quarter: 2020Q3

REPORT INFORMATION
  Report Type: Spontaneous
  Country: US (occurrence: US)
  Receive Date: 20200820
  Receipt Date: 20200820
  Transmission Date: 20201103
  Serious: No
  Sender: FDA-Public Use
  Company Number: US-009507513-2008USA010049

PATIENT
  Age: 49 Year
  Sex: Male

DRUGS (1)
  1. INTRON A [Suspect]
     Active Substance: INTERFERON ALFA-2B
     Indication: PEYRONIE^S DISEASE
     Dosage: STRENGTH: 18MU; DOSE: 3 MILLION UNITS; INTRALESIONAL
     Dates: start: 20200702

REACTIONS (1)
  - Off label use [Unknown]

NARRATIVE: CASE EVENT DATE: 20200702
